FAERS Safety Report 8177644-7 (Version None)
Quarter: 2012Q1

REPORT INFORMATION
  Report Type: 
  Country: None (occurrence: None)
  Receive Date: 20120301
  Receipt Date: 20120223
  Transmission Date: 20120608
  Serious: Yes (Death, Hospitalization, Other)
  Sender: FDA-Public Use
  Company Number: PHHY2012TR001273

PATIENT
  Age: 31 Year
  Sex: Female

DRUGS (6)
  1. CALCIUM CHANNEL BLOCKERS [Concomitant]
  2. SANDOSTATIN LAR [Suspect]
     Dosage: 50 MG, QMO
  3. SSRI [Concomitant]
  4. INTERFERON ALFA-2B [Suspect]
     Dosage: 3000000 IU, UNK
  5. ACETYLSALICYLIC ACID SRT [Concomitant]
     Dosage: 300 MG PER DAY
  6. SANDOSTATIN LAR [Suspect]
     Indication: CARCINOID SYNDROME
     Dosage: 30 MG, EVERY 4 WEEKS

REACTIONS (19)
  - MULTI-ORGAN FAILURE [None]
  - PARANEOPLASTIC SYNDROME [None]
  - HEPATOMEGALY [None]
  - DIARRHOEA [None]
  - DYSPNOEA [None]
  - GANGRENE [None]
  - SOFT TISSUE NECROSIS [None]
  - PERIPHERAL ISCHAEMIA [None]
  - PULMONARY HILUM MASS [None]
  - PULSE PRESSURE DECREASED [None]
  - HYPOXIA [None]
  - RENAL FAILURE ACUTE [None]
  - VASOCONSTRICTION [None]
  - RESPIRATORY FAILURE [None]
  - BLOOD PRESSURE SYSTOLIC DECREASED [None]
  - NEOPLASM MALIGNANT [None]
  - BLOOD CHROMOGRANIN A INCREASED [None]
  - ABDOMINAL PAIN [None]
  - PERIPHERAL COLDNESS [None]
